FAERS Safety Report 11858765 (Version 2)
Quarter: 2016Q1

REPORT INFORMATION
  Report Type: Spontaneous
  Country: US (occurrence: US)
  Receive Date: 20151222
  Receipt Date: 20160325
  Transmission Date: 20160526
  Serious: Yes (Other)
  Sender: FDA-Public Use
  Company Number: US-AUROBINDO-AUR-APL-2015-11539

PATIENT
  Age: 42 Year
  Sex: Male

DRUGS (7)
  1. TOPIRAMATE. [Suspect]
     Active Substance: TOPIRAMATE
     Indication: PRODUCT USED FOR UNKNOWN INDICATION
     Dosage: 75 MG, TWO TIMES A DAY
     Route: 065
  2. ARIPIPRAZOLE 10 MG [Suspect]
     Active Substance: ARIPIPRAZOLE
     Dosage: 20 MG, UNK
     Route: 065
  3. SERTRALINE [Suspect]
     Active Substance: SERTRALINE HYDROCHLORIDE
     Indication: PRODUCT USED FOR UNKNOWN INDICATION
     Dosage: 150 MG, DAILY
     Route: 065
  4. LEVOTHYROXINE. [Concomitant]
     Active Substance: LEVOTHYROXINE
     Indication: PRODUCT USED FOR UNKNOWN INDICATION
     Dosage: 0.112 MG, DAILY
  5. METOPROLOL. [Concomitant]
     Active Substance: METOPROLOL
     Indication: PRODUCT USED FOR UNKNOWN INDICATION
     Route: 065
  6. ARIPIPRAZOLE 10 MG [Suspect]
     Active Substance: ARIPIPRAZOLE
     Indication: APATHY
     Dosage: 10 MG, UNK
     Route: 065
  7. CARBAMAZEPINE. [Suspect]
     Active Substance: CARBAMAZEPINE
     Indication: PRODUCT USED FOR UNKNOWN INDICATION
     Dosage: 400 MG, TWO TIMES A DAY
     Route: 065

REACTIONS (3)
  - Apathy [Recovered/Resolved]
  - Condition aggravated [Recovered/Resolved]
  - Somnolence [Recovered/Resolved]
